FAERS Safety Report 15866949 (Version 1)
Quarter: 2019Q1

REPORT INFORMATION
  Report Type: Spontaneous
  Country: BG (occurrence: BG)
  Receive Date: 20190125
  Receipt Date: 20190125
  Transmission Date: 20190417
  Serious: Yes (Other)
  Sender: FDA-Public Use
  Company Number: BG-ACCORD-103491

PATIENT
  Sex: Male

DRUGS (3)
  1. BICALUTAMIDE. [Suspect]
     Active Substance: BICALUTAMIDE
     Indication: PROSTATE CANCER
     Dosage: 50 MILLIGRAM DAILY
     Route: 048
  2. ENZALUTAMIDE [Suspect]
     Active Substance: ENZALUTAMIDE
     Indication: PROSTATE CANCER
     Dosage: 160 MILLIGRAM DAILY; AFTER INEFFECTIVE TREATMENT, A NEW GENERATION IS INCLUDED ANTIANDROGEN.
  3. RADIUM 223 [Suspect]
     Active Substance: RADIUM RA-223 DICHLORIDE
     Indication: PROSTATE CANCER
     Dosage: 4 INTRAVENOUS APPLICATIONS WITH A TOTAL APPLICATIVE ACTIVITY OF 39.6 MBQ / 55 KBQ / KG
     Route: 042

REACTIONS (4)
  - Drug ineffective [Unknown]
  - Prostate cancer recurrent [Unknown]
  - Prostate cancer [Unknown]
  - Malignant neoplasm progression [Unknown]
